FAERS Safety Report 20869210 (Version 1)
Quarter: 2022Q2

REPORT INFORMATION
  Report Type: Spontaneous
  Country: US (occurrence: None)
  Receive Date: 20220523
  Receipt Date: 20220523
  Transmission Date: 20220721
  Serious: No
  Sender: FDA-Public Use
  Company Number: None

PATIENT

DRUGS (1)
  1. ETOPOSIDE [Suspect]
     Active Substance: ETOPOSIDE
     Indication: Product used for unknown indication
     Route: 048

REACTIONS (5)
  - Product storage error [None]
  - Product preparation error [None]
  - Drug monitoring procedure not performed [None]
  - Product temperature excursion issue [None]
  - Product availability issue [None]
